FAERS Safety Report 9326308 (Version 1)
Quarter: 2013Q3

REPORT INFORMATION
  Report Type: Spontaneous
  Country: US (occurrence: None)
  Receive Date: 20130603
  Receipt Date: 20130603
  Transmission Date: 20140515
  Serious: Yes (Other)
  Sender: FDA-Public Use
  Company Number: None

PATIENT
  Age: 75 Year
  Sex: Male

DRUGS (8)
  1. HURRICAINE TOPICAL ANESTHETIC SPRAY [Suspect]
     Dosage: 1-2 SPRAYS
     Route: 048
  2. LOVENOX [Concomitant]
  3. MAGNESIUM [Concomitant]
  4. TOPROL CARDIO PROTECTION [Concomitant]
  5. MULTIVITAMIN [Concomitant]
  6. ZOSYN(ANTIBIOTIC) [Concomitant]
  7. DIOVAN [Concomitant]
  8. VANCOMYCIN(ANTIBIOTIC) [Concomitant]

REACTIONS (2)
  - Methaemoglobinaemia [None]
  - Mental status changes [None]
